FAERS Safety Report 4404813-1 (Version None)
Quarter: 2004Q3

REPORT INFORMATION
  Report Type: 
  Country: None (occurrence: None)
  Receive Date: 20040715
  Receipt Date: 20040702
  Transmission Date: 20050211
  Serious: Yes (Hospitalization, Other)
  Sender: FDA-Public Use
  Company Number: 2004039774

PATIENT
  Age: 55 Year
  Sex: Male

DRUGS (4)
  1. LIPITOR [Suspect]
     Indication: BLOOD CHOLESTEROL INCREASED
     Dosage: 10 MG (10 MG, 1 IN 1 D), ORAL
     Route: 048
     Dates: start: 19990101
  2. METOPROLOL [Concomitant]
  3. QUINAPRIL HYDROCHLORIDE [Concomitant]
  4. ASPIRIN [Concomitant]

REACTIONS (3)
  - BLOOD CHOLESTEROL ABNORMAL [None]
  - CORONARY ARTERY STENOSIS [None]
  - MYOCARDIAL INFARCTION [None]
